FAERS Safety Report 7714178-5 (Version None)
Quarter: 2011Q3

REPORT INFORMATION
  Report Type: 
  Country: None (occurrence: None)
  Receive Date: 20110829
  Receipt Date: 20110822
  Transmission Date: 20111222
  Serious: Yes (Other)
  Sender: FDA-Public Use
  Company Number: US-BIOGENIDEC-2011BI029588

PATIENT
  Age: 53 Year
  Sex: Female
  Weight: 73 kg

DRUGS (14)
  1. TOPAMAX [Concomitant]
     Route: 048
  2. ACTONEL [Concomitant]
  3. PROTONIX [Concomitant]
  4. CITALOPRAM HYDROBROMIDE [Concomitant]
     Route: 048
  5. CRESTOR [Concomitant]
     Route: 048
  6. AVONEX [Suspect]
     Indication: MULTIPLE SCLEROSIS
     Route: 030
     Dates: end: 20040730
  7. BUSPIRONE HCL [Concomitant]
     Route: 048
  8. PROVIGIL [Concomitant]
     Route: 048
  9. TOPAMAX [Concomitant]
     Route: 048
  10. CALTRATE 600 [Concomitant]
  11. VALIUM [Concomitant]
     Route: 048
  12. OXYBUTYNIN CHLORIDE [Concomitant]
     Route: 048
  13. BACLOFEN [Concomitant]
     Route: 048
  14. TOPAMAX [Concomitant]
     Route: 048

REACTIONS (3)
  - DRUG INEFFECTIVE [None]
  - DEEP VEIN THROMBOSIS [None]
  - COMPLEX PARTIAL SEIZURES [None]
